FAERS Safety Report 16623728 (Version 1)
Quarter: 2019Q3

REPORT INFORMATION
  Report Type: Spontaneous
  Country: CA (occurrence: CA)
  Receive Date: 20190724
  Receipt Date: 20190724
  Transmission Date: 20191004
  Serious: Yes (Hospitalization)
  Sender: FDA-Public Use
  Company Number: CA-AUROBINDO-AUR-APL-2019-041681

PATIENT

DRUGS (5)
  1. NAPROXEN. [Concomitant]
     Active Substance: NAPROXEN
     Indication: PRODUCT USED FOR UNKNOWN INDICATION
     Dosage: UNK
     Route: 065
  2. MONTELUKAST [Suspect]
     Active Substance: MONTELUKAST SODIUM
     Indication: PRODUCT USED FOR UNKNOWN INDICATION
     Dosage: UNK
     Route: 065
  3. XOLAIR [Suspect]
     Active Substance: OMALIZUMAB
     Indication: CHRONIC SPONTANEOUS URTICARIA
     Dosage: 300 MILLIGRAM,1 EVERY 2 WEEKS
     Route: 058
  4. BILASTINE [Concomitant]
     Active Substance: BILASTINE
     Indication: PRODUCT USED FOR UNKNOWN INDICATION
     Dosage: UNK
     Route: 065
  5. DESOXIMETASONE. [Concomitant]
     Active Substance: DESOXIMETASONE
     Indication: PRODUCT USED FOR UNKNOWN INDICATION
     Dosage: UNK
     Route: 065

REACTIONS (10)
  - Drug ineffective [Not Recovered/Not Resolved]
  - Muscle strain [Not Recovered/Not Resolved]
  - Nasopharyngitis [Not Recovered/Not Resolved]
  - Oedema [Not Recovered/Not Resolved]
  - Muscle spasms [Not Recovered/Not Resolved]
  - Stress [Not Recovered/Not Resolved]
  - Chest pain [Not Recovered/Not Resolved]
  - Cough [Not Recovered/Not Resolved]
  - Erythema [Not Recovered/Not Resolved]
  - Urticaria [Not Recovered/Not Resolved]
